FAERS Safety Report 6744782-2 (Version None)
Quarter: 2010Q2

REPORT INFORMATION
  Report Type: 
  Country: None (occurrence: None)
  Receive Date: 20100527
  Receipt Date: 20100218
  Transmission Date: 20101027
  Serious: No
  Sender: FDA-Public Use
  Company Number: US-BRISTOL-MYERS SQUIBB COMPANY-14966048

PATIENT
  Sex: Male

DRUGS (6)
  1. ONGLYZA [Suspect]
     Indication: TYPE 2 DIABETES MELLITUS
     Route: 048
     Dates: start: 20091223, end: 20091228
  2. GLUCOTROL [Suspect]
  3. COUMADIN [Concomitant]
     Indication: DEEP VEIN THROMBOSIS
  4. VYTORIN [Concomitant]
     Indication: BLOOD CHOLESTEROL INCREASED
  5. NORVASC [Concomitant]
     Indication: HYPERTENSION
  6. COREG [Concomitant]
     Indication: HYPERTENSION

REACTIONS (2)
  - CHILLS [None]
  - TREMOR [None]
